FAERS Safety Report 24775782 (Version 3)
Quarter: 2025Q1

REPORT INFORMATION
  Report Type: Spontaneous
  Country: JP (occurrence: JP)
  Receive Date: 20241226
  Receipt Date: 20250311
  Transmission Date: 20250409
  Serious: Yes (Hospitalization, Other)
  Sender: ALEXION PHARMACEUTICALS
  Company Number: JP-AstraZeneca-CH-00770367A

PATIENT
  Age: 11 Month

DRUGS (2)
  1. SOLIRIS [Suspect]
     Active Substance: ECULIZUMAB
     Indication: Atypical haemolytic uraemic syndrome
     Dosage: 300 MILLIGRAM, QW
  2. SOLIRIS [Suspect]
     Active Substance: ECULIZUMAB

REACTIONS (3)
  - Electroencephalogram abnormal [Not Recovered/Not Resolved]
  - Mydriasis [Not Recovered/Not Resolved]
  - Pupillary reflex impaired [Recovering/Resolving]
